FAERS Safety Report 19763173 (Version 1)
Quarter: 2021Q3

REPORT INFORMATION
  Report Type: Spontaneous
  Country: US (occurrence: US)
  Receive Date: 20210827
  Receipt Date: 20210827
  Transmission Date: 20211014
  Serious: No
  Sender: FDA-Public Use
  Company Number: None

PATIENT
  Age: 25 Year
  Sex: Male
  Weight: 92.1 kg

DRUGS (2)
  1. CASIRIVIMAB 120MG/ML [Suspect]
     Active Substance: CASIRIVIMAB
     Indication: COVID-19
     Route: 042
     Dates: start: 20210822
  2. IMDEVIMAB 120MG/ML [Suspect]
     Active Substance: IMDEVIMAB

REACTIONS (4)
  - Dyskinesia [None]
  - Infusion related reaction [None]
  - Heart rate decreased [None]
  - Dizziness [None]

NARRATIVE: CASE EVENT DATE: 20210822
